FAERS Safety Report 24395775 (Version 1)
Quarter: 2024Q4

REPORT INFORMATION
  Report Type: Spontaneous
  Country: US (occurrence: None)
  Receive Date: 20241003
  Receipt Date: 20241003
  Transmission Date: 20250114
  Serious: Yes (unspecified)
  Sender: Public
  Company Number: None

PATIENT
  Age: 52 Year
  Sex: Female

DRUGS (5)
  1. IMVEXXY [Suspect]
     Active Substance: ESTRADIOL
     Indication: Atrophic vulvovaginitis
     Dosage: 1 SUPPOSITORY RWICE WEEKLY VAGINAL
     Route: 067
     Dates: start: 20240101, end: 20240820
  2. PAXIL [Concomitant]
     Active Substance: PAROXETINE HYDROCHLORIDE
  3. AMBIEN [Concomitant]
     Active Substance: ZOLPIDEM TARTRATE
  4. BIOTIN [Concomitant]
     Active Substance: BIOTIN
  5. flinstones multivitamins [Concomitant]

REACTIONS (5)
  - Anxiety [None]
  - Pyrexia [None]
  - Chills [None]
  - Flank pain [None]
  - Contrast media allergy [None]

NARRATIVE: CASE EVENT DATE: 20240820
